FAERS Safety Report 7770990-8 (Version None)
Quarter: 2011Q3

REPORT INFORMATION
  Report Type: 
  Country: None (occurrence: None)
  Receive Date: 20110922
  Receipt Date: 20100913
  Transmission Date: 20111222
  Serious: No
  Sender: FDA-Public Use
  Company Number: US-ASTRAZENECA-2010SE29241

PATIENT
  Age: 56 Year
  Sex: Female
  Weight: 68.9 kg

DRUGS (2)
  1. SEROQUEL XR [Suspect]
     Indication: ANXIETY
     Route: 048
     Dates: start: 20100501
  2. SEROQUEL XR [Suspect]
     Indication: DEPRESSION
     Route: 048
     Dates: start: 20100501

REACTIONS (4)
  - INCREASED APPETITE [None]
  - BALANCE DISORDER [None]
  - WEIGHT INCREASED [None]
  - FATIGUE [None]
